FAERS Safety Report 10161710 (Version 4)
Quarter: 2014Q2

REPORT INFORMATION
  Report Type: Spontaneous
  Country: US (occurrence: US)
  Receive Date: 20140509
  Receipt Date: 20140612
  Transmission Date: 20141212
  Serious: No
  Sender: FDA-Public Use
  Company Number: US-TEVA-480142USA

PATIENT
  Sex: Female
  Weight: 36.32 kg

DRUGS (9)
  1. FENTORA [Suspect]
     Indication: CROHN^S DISEASE
     Route: 002
  2. FENTORA [Suspect]
     Indication: MALABSORPTION
  3. FENTORA [Suspect]
     Indication: NEUROPATHY PERIPHERAL
  4. FENTANYL [Concomitant]
     Indication: PAIN
     Route: 062
  5. VISTARIL [Concomitant]
     Indication: PRURITUS
  6. BENADRYL [Concomitant]
     Indication: PRURITUS
  7. CIMZIA [Concomitant]
     Indication: CROHN^S DISEASE
  8. CIPRO [Concomitant]
     Indication: CROHN^S DISEASE
  9. NEXIUM [Concomitant]
     Indication: GASTRITIS

REACTIONS (3)
  - Off label use [Unknown]
  - Nausea [Unknown]
  - Product taste abnormal [Unknown]
